FAERS Safety Report 9670225 (Version 1)
Quarter: 2013Q4

REPORT INFORMATION
  Report Type: Report from Study
  Country: BR (occurrence: BR)
  Receive Date: 20131105
  Receipt Date: 20131105
  Transmission Date: 20140711
  Serious: Yes (Other)
  Sender: FDA-Public Use
  Company Number: PHHY2013BR125311

PATIENT
  Age: 92 Year
  Sex: Female

DRUGS (3)
  1. EXELON PATCH [Suspect]
     Indication: PARKINSON^S DISEASE
     Dosage: 1 DF, DAILY
     Route: 062
  2. EPEZ [Suspect]
     Indication: PARKINSON^S DISEASE
     Dosage: 1 DF, DAILY
     Route: 048
     Dates: end: 201212
  3. PROLOPA [Suspect]
     Indication: PARKINSON^S DISEASE
     Dosage: 3 DF, DAILY
     Route: 048
     Dates: end: 201212

REACTIONS (2)
  - Thrombosis [Recovered/Resolved]
  - Urinary tract infection [Recovered/Resolved]
